FAERS Safety Report 5221208-1 (Version None)
Quarter: 2007Q1

REPORT INFORMATION
  Report Type: 
  Country: None (occurrence: None)
  Receive Date: 20070126
  Receipt Date: 20070124
  Transmission Date: 20070707
  Serious: Yes (Life-Threatening)
  Sender: FDA-Public Use
  Company Number: HU-BOEHRINGER INGELHEIM PHARMACEUTICALS, INC.-2007-AP-00042AP

PATIENT
  Sex: Male
  Weight: 125 kg

DRUGS (4)
  1. SPIRIVA [Suspect]
     Indication: CHRONIC OBSTRUCTIVE PULMONARY DISEASE
     Route: 055
     Dates: start: 20061129, end: 20061130
  2. SERETIDE [Concomitant]
     Indication: CHRONIC OBSTRUCTIVE PULMONARY DISEASE
     Route: 055
  3. BERODUAL N [Concomitant]
     Indication: ASTHMA
  4. BETALOC [Concomitant]
     Indication: HYPERTENSION

REACTIONS (1)
  - LOSS OF CONSCIOUSNESS [None]
